FAERS Safety Report 4790124-1 (Version None)
Quarter: 2005Q4

REPORT INFORMATION
  Report Type: 
  Country: None (occurrence: None)
  Receive Date: 20051006
  Receipt Date: 20041027
  Transmission Date: 20060501
  Serious: Yes (Disabling)
  Sender: FDA-Public Use
  Company Number: US-ROCHE-384601

PATIENT
  Age: 19 Year
  Sex: Female
  Weight: 63.5 kg

DRUGS (4)
  1. ACCUTANE [Suspect]
     Route: 048
     Dates: start: 20011221, end: 20020119
  2. ACCUTANE [Suspect]
     Dosage: 40 MG ALT WITH 80 MG QD
     Route: 048
     Dates: start: 20020119
  3. AMOCILLIN [Concomitant]
     Route: 048
  4. DEPO-PROVERA [Concomitant]
     Dates: start: 20010809

REACTIONS (19)
  - ARTHRALGIA [None]
  - COLITIS [None]
  - COLITIS ULCERATIVE [None]
  - CONSTIPATION [None]
  - DEFAECATION URGENCY [None]
  - EPISTAXIS [None]
  - GASTROINTESTINAL DISORDER [None]
  - HEADACHE [None]
  - INFLAMMATORY BOWEL DISEASE [None]
  - INTESTINAL HAEMORRHAGE [None]
  - IRRITABLE BOWEL SYNDROME [None]
  - MULTI-ORGAN DISORDER [None]
  - NERVOUSNESS [None]
  - POLYTRAUMATISM [None]
  - PROCTITIS ULCERATIVE [None]
  - PROCTOCOLITIS [None]
  - RECTAL HAEMORRHAGE [None]
  - STOMATITIS [None]
  - WEIGHT DECREASED [None]
